FAERS Safety Report 4711576-9 (Version None)
Quarter: 2005Q3

REPORT INFORMATION
  Report Type: 
  Country: None (occurrence: None)
  Receive Date: 20050706
  Receipt Date: 20050303
  Transmission Date: 20060218
  Serious: No
  Sender: FDA-Public Use
  Company Number: US118811

PATIENT
  Age: 83 Year
  Sex: Female
  Weight: 50 kg

DRUGS (2)
  1. SENSIPAR [Suspect]
     Indication: HYPERPARATHYROIDISM SECONDARY
     Dosage: 30 MG, 1 IN 1 DAYS, PO
     Route: 048
     Dates: start: 20050112, end: 20050205
  2. PAMIDRONATE DISODIUM [Concomitant]

REACTIONS (5)
  - ANOREXIA [None]
  - CONDITION AGGRAVATED [None]
  - HYPOCALCAEMIA [None]
  - NAUSEA [None]
  - VOMITING [None]
